FAERS Safety Report 19314546 (Version 2)
Quarter: 2022Q1

REPORT INFORMATION
  Report Type: Spontaneous
  Country: US (occurrence: US)
  Receive Date: 20210527
  Receipt Date: 20220317
  Transmission Date: 20220423
  Serious: No
  Sender: FDA-Public Use
  Company Number: US-PFIZER INC-2021330092

PATIENT
  Age: 69 Year
  Sex: Male

DRUGS (2)
  1. SULFASALAZINE [Suspect]
     Active Substance: SULFASALAZINE
     Indication: Rheumatoid arthritis
     Dosage: 3 TABLETS IN THE MORNING AND 3 AT NIGHT
     Route: 048
     Dates: start: 202104
  2. SULFASALAZINE [Suspect]
     Active Substance: SULFASALAZINE
     Dosage: SWITCHED TO TAKING 3 A DAY INSTEAD OF SIX FROM AN UNSPECIFIED DATE, THEN SWITCHED TO TWICE A DAY.

REACTIONS (5)
  - Condition aggravated [Unknown]
  - Musculoskeletal stiffness [Unknown]
  - Abdominal discomfort [Unknown]
  - Swelling [Unknown]
  - Intentional product misuse [Unknown]
